FAERS Safety Report 11413313 (Version 3)
Quarter: 2015Q4

REPORT INFORMATION
  Report Type: Spontaneous
  Country: US (occurrence: US)
  Receive Date: 20150824
  Receipt Date: 20151211
  Transmission Date: 20160304
  Serious: No
  Sender: FDA-Public Use
  Company Number: US-ASTRAZENECA-2015SE78685

PATIENT
  Age: 238 Day
  Sex: Female
  Weight: 18.5 kg

DRUGS (2)
  1. NEXIUM [Suspect]
     Active Substance: ESOMEPRAZOLE MAGNESIUM
     Indication: GASTROOESOPHAGEAL REFLUX DISEASE
     Dosage: 20MG (HALF OF A 20MG PACKET), TWO TIMES A DAY
     Route: 048
     Dates: start: 20150720, end: 20150810
  2. NEXIUM [Suspect]
     Active Substance: ESOMEPRAZOLE MAGNESIUM
     Indication: GASTROOESOPHAGEAL REFLUX DISEASE
     Dosage: 10MG (HALF OF A 20MG PACKET), TWO TIMES A DAY
     Route: 048
     Dates: start: 20150722

REACTIONS (8)
  - Nasal congestion [Unknown]
  - Sneezing [Unknown]
  - Dysphonia [Unknown]
  - Hypersensitivity [Unknown]
  - Intentional product misuse [Unknown]
  - Sleep disorder [Unknown]
  - Off label use [Unknown]
  - Product use issue [Unknown]

NARRATIVE: CASE EVENT DATE: 20150722
